FAERS Safety Report 23339382 (Version 1)
Quarter: 2023Q4

REPORT INFORMATION
  Report Type: Spontaneous
  Country: TW (occurrence: TW)
  Receive Date: 20231226
  Receipt Date: 20231226
  Transmission Date: 20240110
  Serious: Yes (Life-Threatening, Other)
  Sender: FDA-Public Use
  Company Number: TW-FreseniusKabi-FK202320843

PATIENT
  Age: 79 Year
  Sex: Female

DRUGS (10)
  1. PACLITAXEL [Suspect]
     Active Substance: PACLITAXEL
     Indication: Triple negative breast cancer
     Dosage: FREQUENCY: IMMEDIATELY
     Route: 041
     Dates: start: 20231027, end: 20231204
  2. KEYTRUDA [Suspect]
     Active Substance: PEMBROLIZUMAB
     Indication: Triple negative breast cancer
     Dosage: ROUTE: INTRAVENOUS DRIP
     Dates: start: 20230825, end: 20231130
  3. CYCLOPHOSPHAMIDE [Concomitant]
     Active Substance: CYCLOPHOSPHAMIDE
     Indication: Triple negative breast cancer
     Dosage: OTHER DATES: AUGUST 25, SEPTEMBER 15, OCTOBER 6, 2023
     Dates: start: 20230804
  4. DOXORUBICIN HYDROCHLORIDE [Concomitant]
     Active Substance: DOXORUBICIN HYDROCHLORIDE
     Indication: Triple negative breast cancer
     Dosage: AUGUST 25, SEPTEMBER 15, OCTOBER 6, 2023
  5. Limeson 4mg [Concomitant]
     Indication: Product used for unknown indication
     Dosage: EXCLUDED FROM 1 TAB BID PO FROM DECEMBER 4, 2023, TO DECEMBER 7, 2023?ROUTE: ORAL
  6. Stilnox 10mg/tablet [Concomitant]
     Indication: Product used for unknown indication
     Dosage: EXCLUDED STILNOX 10MG/TABLET (ZOLPIDEM) 1 TAB HS PO FROM NOVEMBER 13, 2023, TO NOVEMBER 20, 2023?ROU
  7. Xyzal F.C. 5mg/tablet [Concomitant]
     Indication: Product used for unknown indication
     Dosage: EXCLUDED XYZAL F.C. 5MG/TABLET (LEVOCETIRIZINE)1 TAB QN PO FROM NOVEMBER 6, 2023, TO NOVEMBER 13, 20
  8. MYCOMB  cream  20g/tube [Concomitant]
     Indication: Product used for unknown indication
     Dosage: EXCLUDED 1 QS BID TOPI FROM NOVEMBER 6, 2023, TO NOVEMBER 13, 2023?ROUTE: TOPICAL
  9. Nincort Oral Gel 1mg/gm, 5gm/tube [Concomitant]
     Indication: Product used for unknown indication
     Dosage: EXCLUDED NINCORT ORAL GEL 1MG/GM, 5GM/TUBE (TRIAMCINOLONE) 1 QS BID TOPI FROM NOVEMBER 20, 2023, TO
  10. Sinpharderm Cream 30gm/tube (Urea) [Concomitant]
     Indication: Product used for unknown indication
     Dosage: EXCLUDED SINPHARDERM CREAM 30GM/TUBE (UREA) 1 QS BID TOPI FROM NOVEMBER 20, 2023, TO NOVEMBER 27, 20

REACTIONS (4)
  - Acute respiratory distress syndrome [Not Recovered/Not Resolved]
  - Pleural effusion [Not Recovered/Not Resolved]
  - Pneumothorax [Not Recovered/Not Resolved]
  - Pneumonia [Not Recovered/Not Resolved]

NARRATIVE: CASE EVENT DATE: 20231210
